FAERS Safety Report 8317196-1 (Version None)
Quarter: 2012Q2

REPORT INFORMATION
  Report Type: 
  Country: None (occurrence: None)
  Receive Date: 20120425
  Receipt Date: 20120412
  Transmission Date: 20120825
  Serious: Yes (Other)
  Sender: FDA-Public Use
  Company Number: JPI-P-020305

PATIENT
  Age: 32 Year
  Sex: Female
  Weight: 79.4 kg

DRUGS (6)
  1. XYREM [Suspect]
     Indication: NARCOLEPSY
     Dosage: 4.5 GM (2.25 GM 2 IN 1 D), ORAL, 7 GM (3.5 GM, 2 IN 1 D), ORAL, 7 GM (3.5 GM, 2 IN 1 D), ORAL
     Route: 048
     Dates: start: 20080701, end: 20081101
  2. XYREM [Suspect]
     Indication: NARCOLEPSY
     Dosage: 4.5 GM (2.25 GM 2 IN 1 D), ORAL, 7 GM (3.5 GM, 2 IN 1 D), ORAL, 7 GM (3.5 GM, 2 IN 1 D), ORAL
     Route: 048
     Dates: start: 20080417, end: 20080701
  3. XYREM [Suspect]
     Indication: NARCOLEPSY
     Dosage: 4.5 GM (2.25 GM 2 IN 1 D), ORAL, 7 GM (3.5 GM, 2 IN 1 D), ORAL, 7 GM (3.5 GM, 2 IN 1 D), ORAL
     Route: 048
     Dates: start: 20120401
  4. XYREM [Suspect]
     Indication: NARCOLEPSY
     Dosage: 4.5 GM (2.25 GM 2 IN 1 D), ORAL, 7 GM (3.5 GM, 2 IN 1 D), ORAL, 7 GM (3.5 GM, 2 IN 1 D), ORAL
     Route: 048
     Dates: start: 20110101, end: 20120214
  5. MODAFINIL [Concomitant]
  6. MULTIVITAMIN [Concomitant]

REACTIONS (3)
  - PREGNANCY [None]
  - ABORTION SPONTANEOUS [None]
  - MATERNAL EXPOSURE DURING PREGNANCY [None]
